FAERS Safety Report 9818222 (Version 5)
Quarter: 2015Q4

REPORT INFORMATION
  Report Type: Spontaneous
  Country: US (occurrence: US)
  Receive Date: 20140115
  Receipt Date: 20151113
  Transmission Date: 20160305
  Serious: Yes (Life-Threatening, Hospitalization, Other)
  Sender: FDA-Public Use
  Company Number: US-009507513-1401USA004788

PATIENT
  Sex: Female
  Weight: 104.31 kg

DRUGS (1)
  1. JANUVIA [Suspect]
     Active Substance: SITAGLIPTIN PHOSPHATE
     Indication: TYPE 2 DIABETES MELLITUS
     Dosage: 100 MG, QD
     Route: 048
     Dates: start: 20090424, end: 20120709

REACTIONS (12)
  - Pancreatic cyst [Unknown]
  - Diabetes mellitus inadequate control [Unknown]
  - Supraventricular tachycardia [Unknown]
  - Left ventricular hypertrophy [Unknown]
  - Pancreatic operation [Unknown]
  - Hysterectomy [Unknown]
  - Blood cholesterol increased [Unknown]
  - Cardiac ablation [Unknown]
  - Oedema peripheral [Unknown]
  - Pancreatic carcinoma [Unknown]
  - Pancreatectomy [Unknown]
  - Hypertensive heart disease [Unknown]

NARRATIVE: CASE EVENT DATE: 201112
